FAERS Safety Report 18015737 (Version 9)
Quarter: 2022Q4

REPORT INFORMATION
  Report Type: Spontaneous
  Country: US (occurrence: US)
  Receive Date: 20200713
  Receipt Date: 20221101
  Transmission Date: 20230112
  Serious: Yes (Other)
  Sender: FDA-Public Use
  Company Number: US-PFIZER INC-2020266711

PATIENT
  Age: 85 Year
  Sex: Female

DRUGS (6)
  1. IBRANCE [Suspect]
     Active Substance: PALBOCICLIB
     Dosage: 100 MG, CYCLIC
     Dates: start: 20200624, end: 202006
  2. IBRANCE [Suspect]
     Active Substance: PALBOCICLIB
     Dosage: 75 MG
     Dates: start: 20200706
  3. IBRANCE [Suspect]
     Active Substance: PALBOCICLIB
     Dosage: CHANGE FROM CYCLE (21 DAYS ON, 7 DAYS OFF) TO CYCLE (7 DAYS ON, 7 DAYS OFF)
  4. IBRANCE [Suspect]
     Active Substance: PALBOCICLIB
     Dosage: 75 MG  7 DAYS ON, 7 DAYS OFF
     Dates: start: 20200715
  5. IBRANCE [Suspect]
     Active Substance: PALBOCICLIB
     Dosage: 75 MG
     Dates: start: 20200721
  6. KEYTRUDA [Concomitant]
     Active Substance: PEMBROLIZUMAB
     Dosage: 2 INFUSION
     Dates: end: 20220117

REACTIONS (12)
  - Syncope [Unknown]
  - Off label use [Unknown]
  - Product use issue [Unknown]
  - Inappropriate schedule of product administration [Unknown]
  - Arthralgia [Unknown]
  - White blood cell count decreased [Unknown]
  - Red blood cell count decreased [Unknown]
  - Joint stiffness [Unknown]
  - Eye infection [Unknown]
  - Asthenia [Not Recovered/Not Resolved]
  - Stress [Unknown]
  - Rash [Unknown]

NARRATIVE: CASE EVENT DATE: 20200101
